FAERS Safety Report 17908641 (Version 1)
Quarter: 2020Q2

REPORT INFORMATION
  Report Type: Spontaneous
  Country: CA (occurrence: CA)
  Receive Date: 20200617
  Receipt Date: 20200617
  Transmission Date: 20200714
  Serious: Yes (Other)
  Sender: FDA-Public Use
  Company Number: CA-ASTRAZENECA-2020SE69012

PATIENT
  Age: 59 Year
  Sex: Female

DRUGS (5)
  1. NEXIUM 24HR [Suspect]
     Active Substance: ESOMEPRAZOLE MAGNESIUM
     Dosage: UNK
     Route: 048
  2. PLAQUENIL [Concomitant]
     Active Substance: HYDROXYCHLOROQUINE SULFATE
     Dosage: 200 MG, 1X/DAY (ALT. 200 MG BID)
  3. ARAVA [Concomitant]
     Active Substance: LEFLUNOMIDE
  4. PREDNISONE. [Concomitant]
     Active Substance: PREDNISONE
  5. CRESTOR [Concomitant]
     Active Substance: ROSUVASTATIN CALCIUM
     Dosage: UNK

REACTIONS (5)
  - Multiple sclerosis [Unknown]
  - Dizziness [Unknown]
  - Mycobacterium tuberculosis complex test positive [Unknown]
  - Gait disturbance [Unknown]
  - Arthralgia [Unknown]
